FAERS Safety Report 13211109 (Version 1)
Quarter: 2017Q1

REPORT INFORMATION
  Report Type: Spontaneous
  Country: US (occurrence: US)
  Receive Date: 20170210
  Receipt Date: 20170210
  Transmission Date: 20170428
  Serious: Yes (Death)
  Sender: FDA-Public Use
  Company Number: None

PATIENT
  Age: 71 Year
  Sex: Male
  Weight: 113.6 kg

DRUGS (21)
  1. CARVEDILOL. [Concomitant]
     Active Substance: CARVEDILOL
  2. FEXOFENADINE [Concomitant]
     Active Substance: FEXOFENADINE\FEXOFENADINE HYDROCHLORIDE
  3. CRIZOTINIB [Suspect]
     Active Substance: CRIZOTINIB
     Indication: LUNG SQUAMOUS CELL CARCINOMA STAGE III
     Route: 048
     Dates: start: 20161223, end: 20170117
  4. ASPIRIN. [Concomitant]
     Active Substance: ASPIRIN
  5. TYLENOL [Concomitant]
     Active Substance: ACETAMINOPHEN
  6. VALSARTAN. [Concomitant]
     Active Substance: VALSARTAN
  7. ATORVASTATIN [Concomitant]
     Active Substance: ATORVASTATIN
  8. DOCUSATE-SENNA 50-8.6MG [Concomitant]
     Active Substance: DOCUSATE SODIUM\SENNOSIDES
  9. VENTOLIN HFA [Concomitant]
     Active Substance: ALBUTEROL SULFATE
  10. ALLOPURINOL. [Concomitant]
     Active Substance: ALLOPURINOL
  11. BENZONATATE. [Concomitant]
     Active Substance: BENZONATATE
  12. COLCRYS [Concomitant]
     Active Substance: COLCHICINE
  13. PHENOL SPRAY (CHLORASEPTIC SPRAY) [Concomitant]
  14. FLONASE [Concomitant]
     Active Substance: FLUTICASONE PROPIONATE
  15. FUROSEMIDE. [Concomitant]
     Active Substance: FUROSEMIDE
  16. INSULIN GLARGINE [Concomitant]
     Active Substance: INSULIN GLARGINE
  17. NATEGLINIDE. [Concomitant]
     Active Substance: NATEGLINIDE
  18. PERCOCET [Concomitant]
     Active Substance: ACETAMINOPHEN\OXYCODONE HYDROCHLORIDE
  19. TAMSULOSIN [Concomitant]
     Active Substance: TAMSULOSIN
  20. LANSOPRAZOLE. [Concomitant]
     Active Substance: LANSOPRAZOLE
  21. TRAZODONE [Concomitant]
     Active Substance: TRAZODONE HYDROCHLORIDE

REACTIONS (5)
  - Dyspnoea [None]
  - Cough [None]
  - Productive cough [None]
  - Lung disorder [None]
  - Respiratory failure [None]

NARRATIVE: CASE EVENT DATE: 20170117
